FAERS Safety Report 14346102 (Version 1)
Quarter: 2018Q1

REPORT INFORMATION
  Report Type: Spontaneous
  Country: BE (occurrence: BE)
  Receive Date: 20180103
  Receipt Date: 20180103
  Transmission Date: 20180509
  Serious: Yes (Life-Threatening, Other)
  Sender: FDA-Public Use
  Company Number: BE-MYLANLABS-2017M1083634

PATIENT
  Age: 41 Year
  Sex: Male

DRUGS (2)
  1. BACLOFEN. [Suspect]
     Active Substance: BACLOFEN
     Indication: PRODUCT USED FOR UNKNOWN INDICATION
     Dosage: 150 MG, UNK
  2. VALIUM [Suspect]
     Active Substance: DIAZEPAM
     Indication: PRODUCT USED FOR UNKNOWN INDICATION
     Dosage: DE 1 ? 3 COMPRIM?S PAR JOUR
     Dates: start: 2015, end: 2016

REACTIONS (4)
  - Suicide attempt [Unknown]
  - Anterograde amnesia [Unknown]
  - Homicide [Unknown]
  - Retrograde amnesia [Unknown]
